FAERS Safety Report 8361619-9 (Version None)
Quarter: 2012Q2

REPORT INFORMATION
  Report Type: 
  Country: None (occurrence: None)
  Receive Date: 20120514
  Receipt Date: 20120430
  Transmission Date: 20120825
  Serious: Yes (Other)
  Sender: FDA-Public Use
  Company Number: 20120234

PATIENT
  Age: 48 Year
  Sex: Female

DRUGS (1)
  1. CYANOCOBALAMIN [Suspect]
     Dosage: 1 ML EVERY 2 WEEKS, INTRAMUSCULAR
     Dates: start: 20120306, end: 20120403

REACTIONS (2)
  - VAGINAL HAEMORRHAGE [None]
  - PRODUCT QUALITY ISSUE [None]
